FAERS Safety Report 25402128 (Version 3)
Quarter: 2025Q3

REPORT INFORMATION
  Report Type: Spontaneous
  Country: US (occurrence: US)
  Receive Date: 20250605
  Receipt Date: 20250707
  Transmission Date: 20251021
  Serious: No
  Sender: AMGEN
  Company Number: US-PFIZER INC-202500112875

PATIENT
  Age: 69 Year
  Sex: Female

DRUGS (1)
  1. ENBREL [Suspect]
     Active Substance: ETANERCEPT
     Indication: Product used for unknown indication
     Route: 065
     Dates: start: 201906

REACTIONS (1)
  - Urticaria [Recovered/Resolved]
